FAERS Safety Report 23214246 (Version 2)
Quarter: 2023Q4

REPORT INFORMATION
  Report Type: Report from Study
  Country: US (occurrence: US)
  Receive Date: 20231121
  Receipt Date: 20231130
  Transmission Date: 20240110
  Serious: Yes (Hospitalization, Other)
  Sender: FDA-Public Use
  Company Number: US-ALXN-A202211738AA

PATIENT
  Sex: Male

DRUGS (5)
  1. SOLIRIS [Suspect]
     Active Substance: ECULIZUMAB
     Indication: Atypical haemolytic uraemic syndrome
     Dosage: 900 MG, UNK
     Route: 041
     Dates: start: 20211129, end: 202207
  2. SOLIRIS [Suspect]
     Active Substance: ECULIZUMAB
     Dosage: UNK
     Route: 065
     Dates: start: 20220907
  3. SOLIRIS [Suspect]
     Active Substance: ECULIZUMAB
     Dosage: UNK , Q2W
     Route: 065
  4. NIFEDIPINE [Suspect]
     Active Substance: NIFEDIPINE
     Indication: Malignant hypertension
     Dosage: UNK
     Route: 065
  5. NICARDIPINE [Suspect]
     Active Substance: NICARDIPINE
     Indication: Malignant hypertension
     Dosage: UNK
     Route: 041

REACTIONS (27)
  - Malignant hypertension [Unknown]
  - Acute kidney injury [Recovered/Resolved]
  - Thrombotic microangiopathy [Not Recovered/Not Resolved]
  - Atypical haemolytic uraemic syndrome [Not Recovered/Not Resolved]
  - Condition aggravated [Not Recovered/Not Resolved]
  - Cardiac failure congestive [Unknown]
  - Pulmonary oedema [Unknown]
  - COVID-19 [Unknown]
  - Pleural effusion [Unknown]
  - Sepsis [Unknown]
  - Left ventricular failure [Not Recovered/Not Resolved]
  - Haemolytic anaemia [Recovering/Resolving]
  - Pseudomonas infection [Unknown]
  - Morganella infection [Unknown]
  - Road traffic accident [Unknown]
  - Platelet count decreased [Recovering/Resolving]
  - Blood pressure increased [Recovering/Resolving]
  - Insomnia [Unknown]
  - Gait disturbance [Unknown]
  - Malaise [Unknown]
  - Pain [Unknown]
  - Total complement activity increased [Unknown]
  - Off label use [Unknown]
  - Nervousness [Unknown]
  - Blood creatinine increased [Unknown]
  - Urinary tract infection [Unknown]
  - Dyspnoea [Unknown]

NARRATIVE: CASE EVENT DATE: 20220101
